FAERS Safety Report 6803791-5 (Version None)
Quarter: 2010Q2

REPORT INFORMATION
  Report Type: 
  Country: None (occurrence: None)
  Receive Date: 20100628
  Receipt Date: 20100622
  Transmission Date: 20101027
  Serious: Yes (Hospitalization)
  Sender: FDA-Public Use
  Company Number: FR-WYE-G06210010

PATIENT
  Sex: Male

DRUGS (7)
  1. TAZOCILLINE [Suspect]
     Indication: BACTERIAL SEPSIS
     Route: 042
     Dates: start: 20100518, end: 20100529
  2. CACIT VITAMINE D3 [Concomitant]
     Route: 048
  3. TRIFLUCAN [Suspect]
     Indication: BACTERIAL SEPSIS
     Dosage: 400 MG DAILY AFTER HEMODIALYSIS
     Route: 042
     Dates: start: 20100518
  4. SOMATOSTATIN [Concomitant]
     Dosage: UNKNOWN
     Dates: end: 20100522
  5. KABIVEN [Concomitant]
     Dosage: UNKNOWN
     Route: 042
  6. NEXIUM [Concomitant]
  7. FUROSEMIDE [Concomitant]
     Dosage: 1500 MG TOTAL DAILY

REACTIONS (13)
  - ANAEMIA [None]
  - EFFUSION [None]
  - EPISTAXIS [None]
  - HAEMATOCHEZIA [None]
  - HEADACHE [None]
  - ILEUS [None]
  - INFUSION SITE HAEMORRHAGE [None]
  - MUCOUS STOOLS [None]
  - PLATELET AGGREGATION ABNORMAL [None]
  - PLATELET COUNT DECREASED [None]
  - POST PROCEDURAL HAEMORRHAGE [None]
  - SMALL INTESTINAL HAEMORRHAGE [None]
  - SPLENOMEGALY [None]
